FAERS Safety Report 15296249 (Version 1)
Quarter: 2018Q3

REPORT INFORMATION
  Report Type: Report from Study
  Country: ES (occurrence: ES)
  Receive Date: 20180820
  Receipt Date: 20180820
  Transmission Date: 20181010
  Serious: Yes (Life-Threatening, Hospitalization)
  Sender: FDA-Public Use
  Company Number: ES-ACCORD-070852

PATIENT
  Age: 58 Year
  Sex: Female

DRUGS (3)
  1. QUETIAPINE. [Suspect]
     Active Substance: QUETIAPINE
     Route: 048
     Dates: start: 20160618, end: 20160618
  2. DIAZEPAM. [Interacting]
     Active Substance: DIAZEPAM
     Route: 048
     Dates: start: 20160618, end: 20160618
  3. MIRTAZAPINE. [Interacting]
     Active Substance: MIRTAZAPINE
     Route: 048
     Dates: start: 20160618, end: 20160618

REACTIONS (4)
  - Coma [Recovered/Resolved]
  - Drug interaction [Unknown]
  - Intentional overdose [Unknown]
  - Seizure [Recovered/Resolved]

NARRATIVE: CASE EVENT DATE: 20160618
